FAERS Safety Report 8200463-X (Version None)
Quarter: 2012Q1

REPORT INFORMATION
  Report Type: 
  Country: None (occurrence: None)
  Receive Date: 20120312
  Receipt Date: 20120308
  Transmission Date: 20120608
  Serious: Yes (Hospitalization, Other)
  Sender: FDA-Public Use
  Company Number: AU-BAYER-2012-022585

PATIENT
  Age: 48 Year
  Sex: Male

DRUGS (5)
  1. MORPHINE SULFATE [Concomitant]
  2. ULTRAVIST 150 [Suspect]
     Indication: COMPUTERISED TOMOGRAM
  3. ULTRAVIST 150 [Suspect]
     Indication: COMPUTERISED TOMOGRAM ABDOMEN
     Dosage: 100 ML, ONCE
     Dates: start: 20120308, end: 20120308
  4. ATENOLOL [Concomitant]
  5. MS CONTIN [Concomitant]

REACTIONS (2)
  - PULSE ABSENT [None]
  - CONVULSION [None]
